FAERS Safety Report 7733756-0 (Version None)
Quarter: 2011Q3

REPORT INFORMATION
  Report Type: 
  Country: None (occurrence: None)
  Receive Date: 20110902
  Receipt Date: 20110902
  Transmission Date: 20111222
  Serious: No
  Sender: FDA-Public Use
  Company Number: None

PATIENT
  Age: 55 Year
  Sex: Female
  Weight: 85.7298 kg

DRUGS (1)
  1. CARVEDILOL [Suspect]
     Dosage: 3.125MG 1XDAY
     Dates: start: 20110721, end: 20110730

REACTIONS (2)
  - PRURITUS GENERALISED [None]
  - RASH [None]
